FAERS Safety Report 16101556 (Version 1)
Quarter: 2019Q1

REPORT INFORMATION
  Report Type: Spontaneous
  Country: BR (occurrence: BR)
  Receive Date: 20190321
  Receipt Date: 20190321
  Transmission Date: 20190418
  Serious: Yes (Other)
  Sender: FDA-Public Use
  Company Number: BR-BAYER-2017-186567

PATIENT
  Age: 25 Year
  Sex: Female
  Weight: 74 kg

DRUGS (1)
  1. QLAIRA [Suspect]
     Active Substance: DIENOGEST\ESTRADIOL VALERATE
     Indication: CONTRACEPTION
     Dosage: 1 DF, QD
     Route: 048
     Dates: start: 201611, end: 20170705

REACTIONS (3)
  - Pregnancy on oral contraceptive [Recovered/Resolved]
  - Caesarean section [None]
  - Drug ineffective [None]

NARRATIVE: CASE EVENT DATE: 201707
